FAERS Safety Report 19130531 (Version 1)
Quarter: 2021Q2

REPORT INFORMATION
  Report Type: Spontaneous
  Country: NO (occurrence: NO)
  Receive Date: 20210414
  Receipt Date: 20210414
  Transmission Date: 20210717
  Serious: Yes (Hospitalization, Disabling)
  Sender: FDA-Public Use
  Company Number: NO-ABBVIE-21P-122-3856191-00

PATIENT
  Age: 18 Year
  Sex: Female

DRUGS (4)
  1. LEVONORGESTREL. [Concomitant]
     Active Substance: LEVONORGESTREL
     Indication: ENDOMETRIOSIS
     Dosage: UNK
     Route: 015
     Dates: start: 201910
  2. VIMOVO [Concomitant]
     Active Substance: ESOMEPRAZOLE MAGNESIUM\NAPROXEN
     Indication: ANALGESIC THERAPY
     Dosage: UNK
     Route: 048
     Dates: start: 201811, end: 201901
  3. PROCRIN [Suspect]
     Active Substance: LEUPROLIDE ACETATE
     Indication: ENDOMETRIOSIS
     Dosage: 3.75 MILLIGRAM, MONTHLY
     Route: 058
     Dates: start: 20181109, end: 201901
  4. PROGYNOVA [ESTRADIOL] [Concomitant]
     Indication: SUPPLEMENTATION THERAPY
     Dosage: 1 MILLIGRAM, QD
     Route: 048
     Dates: start: 201811, end: 201901

REACTIONS (4)
  - Nausea [Not Recovered/Not Resolved]
  - Relapsing fever [Not Recovered/Not Resolved]
  - Fatigue [Not Recovered/Not Resolved]
  - Hyperhidrosis [Not Recovered/Not Resolved]

NARRATIVE: CASE EVENT DATE: 201811
